FAERS Safety Report 9786250 (Version 1)
Quarter: 2013Q4

REPORT INFORMATION
  Report Type: Report from Study
  Country: CH (occurrence: CH)
  Receive Date: 20131227
  Receipt Date: 20131227
  Transmission Date: 20140711
  Serious: Yes (Hospitalization, Other)
  Sender: FDA-Public Use
  Company Number: CH-ROCHE-1320868

PATIENT
  Age: 70 Year
  Sex: Female

DRUGS (2)
  1. BEVACIZUMAB [Suspect]
     Indication: BRAIN NEOPLASM MALIGNANT
     Dosage: DATE OF LAST DOSE PRIOR TO SAE: 18/NOV/2013
     Route: 042
     Dates: start: 20130820
  2. KEPPRA [Concomitant]
     Indication: PROPHYLAXIS
     Route: 065
     Dates: start: 20130717

REACTIONS (2)
  - Partial seizures [Not Recovered/Not Resolved]
  - Genitourinary tract infection [Not Recovered/Not Resolved]
